FAERS Safety Report 6681974-5 (Version None)
Quarter: 2010Q2

REPORT INFORMATION
  Report Type: 
  Country: None (occurrence: None)
  Receive Date: 20100402
  Receipt Date: 20100323
  Transmission Date: 20101027
  Serious: Yes (Hospitalization, Other)
  Sender: FDA-Public Use
  Company Number: AEUSA201000086

PATIENT
  Sex: Female

DRUGS (1)
  1. GAMUNEX [Suspect]
     Dosage: IV
     Route: 042
     Dates: start: 20100301, end: 20100301

REACTIONS (2)
  - DYSPNOEA [None]
  - PLEURAL EFFUSION [None]
